FAERS Safety Report 7244470 (Version 2)
Quarter: 2012Q4

REPORT INFORMATION
  Report Type: Spontaneous
  Country: GB (occurrence: None)
  Receive Date: 20091224
  Receipt Date: 20121022
  Transmission Date: 20130627
  Serious: Yes (Hospitalization)
  Sender: FDA-Public Use
  Company Number: 455350

PATIENT
  Age: 40 Year
  Sex: Female

DRUGS (116)
  1. FLUDARABINE [Suspect]
     Indication: PANCREATIC CANCER METASTATIC
     Dosage: 48 MG, 1 DAY, INTRAVENOUS
     Route: 042
     Dates: start: 20090918, end: 20090922
  2. CYCLOPHOSPHAMIDE [Suspect]
     Indication: PANCREATIC CANCER METASTATIC
     Route: 042
     Dates: start: 20090916, end: 20090916
  3. CYCLOPHOSPHAMIDE [Suspect]
     Indication: PANCREATIC CANCER METASTATIC
     Route: 042
     Dates: start: 20090917, end: 20090917
  4. PROLEUKIN [Suspect]
     Indication: PANCREATIC CANCER METASTATIC
     Dosage: decreased incrementally from 45 MIU to 22.5
     Dates: start: 20090923, end: 20090923
  5. UNSPECIFIED INGREDIENTS [Suspect]
     Indication: PANCREATIC CANCER METASTATIC
     Route: 041
     Dates: start: 20090923, end: 20090923
  6. TEICOPLANIN [Suspect]
     Indication: ANTIBACTERIAL PROPHYLAXIS
     Dates: start: 20090918, end: 20090919
  7. TEICOPLANIN [Suspect]
     Indication: INFECTION
     Dates: start: 20090918, end: 20090919
  8. TEICOPLANIN [Suspect]
     Indication: NEUTROPENIC SEPSIS
     Dates: start: 20090918, end: 20090919
  9. TEICOPLANIN [Suspect]
     Indication: ANTIBACTERIAL PROPHYLAXIS
     Dates: start: 20090918, end: 20090919
  10. TEICOPLANIN [Suspect]
     Indication: INFECTION
     Dates: start: 20090918, end: 20090919
  11. TEICOPLANIN [Suspect]
     Indication: NEUTROPENIC SEPSIS
     Dates: start: 20090918, end: 20090919
  12. TEICOPLANIN [Suspect]
     Indication: ANTIBACTERIAL PROPHYLAXIS
     Dates: start: 20090918, end: 20090919
  13. TEICOPLANIN [Suspect]
     Indication: INFECTION
     Dates: start: 20090918, end: 20090919
  14. TEICOPLANIN [Suspect]
     Indication: NEUTROPENIC SEPSIS
     Dates: start: 20090918, end: 20090919
  15. TEICOPLANIN [Suspect]
     Indication: ANTIBACTERIAL PROPHYLAXIS
     Dates: start: 20090918, end: 20090919
  16. TEICOPLANIN [Suspect]
     Indication: INFECTION
     Dates: start: 20090918, end: 20090919
  17. TEICOPLANIN [Suspect]
     Indication: NEUTROPENIC SEPSIS
     Dates: start: 20090918, end: 20090919
  18. TEICOPLANIN [Suspect]
     Indication: ANTIBACTERIAL PROPHYLAXIS
     Dates: start: 20090918, end: 20090919
  19. TEICOPLANIN [Suspect]
     Indication: INFECTION
     Dates: start: 20090918, end: 20090919
  20. TEICOPLANIN [Suspect]
     Indication: NEUTROPENIC SEPSIS
     Dates: start: 20090918, end: 20090919
  21. TEICOPLANIN [Suspect]
     Indication: ANTIBACTERIAL PROPHYLAXIS
     Dates: start: 20090918, end: 20090919
  22. TEICOPLANIN [Suspect]
     Indication: INFECTION
     Dates: start: 20090918, end: 20090919
  23. TEICOPLANIN [Suspect]
     Indication: NEUTROPENIC SEPSIS
     Dates: start: 20090918, end: 20090919
  24. TEICOPLANIN [Suspect]
     Indication: ANTIBACTERIAL PROPHYLAXIS
     Dates: start: 20090923, end: 20090928
  25. TEICOPLANIN [Suspect]
     Indication: INFECTION
     Dates: start: 20090923, end: 20090928
  26. TEICOPLANIN [Suspect]
     Indication: NEUTROPENIC SEPSIS
     Dates: start: 20090923, end: 20090928
  27. TEICOPLANIN [Suspect]
     Indication: ANTIBACTERIAL PROPHYLAXIS
     Dates: start: 20090923, end: 20090928
  28. TEICOPLANIN [Suspect]
     Indication: INFECTION
     Dates: start: 20090923, end: 20090928
  29. TEICOPLANIN [Suspect]
     Indication: NEUTROPENIC SEPSIS
     Dates: start: 20090923, end: 20090928
  30. TEICOPLANIN [Suspect]
     Indication: ANTIBACTERIAL PROPHYLAXIS
     Dates: start: 20090923, end: 20090928
  31. TEICOPLANIN [Suspect]
     Indication: INFECTION
     Dates: start: 20090923, end: 20090928
  32. TEICOPLANIN [Suspect]
     Indication: NEUTROPENIC SEPSIS
     Dates: start: 20090923, end: 20090928
  33. TEICOPLANIN [Suspect]
     Indication: ANTIBACTERIAL PROPHYLAXIS
     Dates: start: 20090923, end: 20090928
  34. TEICOPLANIN [Suspect]
     Indication: INFECTION
     Dates: start: 20090923, end: 20090928
  35. TEICOPLANIN [Suspect]
     Indication: NEUTROPENIC SEPSIS
     Dates: start: 20090923, end: 20090928
  36. MEROPENEM [Suspect]
     Indication: INFECTION
     Dosage: 1D
     Route: 042
     Dates: start: 20091004, end: 20091012
  37. MEROPENEM [Suspect]
     Indication: ANTIBACTERIAL PROPHYLAXIS
     Dosage: 1D
     Route: 042
     Dates: start: 20091004, end: 20091012
  38. MEROPENEM [Suspect]
     Indication: NEUTROPENIC SEPSIS
     Dosage: 1D
     Route: 042
     Dates: start: 20091004, end: 20091012
  39. MEROPENEM [Suspect]
     Indication: INFECTION
     Dosage: 1D
     Route: 042
     Dates: start: 20091004, end: 20091012
  40. MEROPENEM [Suspect]
     Indication: ANTIBACTERIAL PROPHYLAXIS
     Dosage: 1D
     Route: 042
     Dates: start: 20091004, end: 20091012
  41. MEROPENEM [Suspect]
     Indication: NEUTROPENIC SEPSIS
     Dosage: 1D
     Route: 042
     Dates: start: 20091004, end: 20091012
  42. MEROPENEM [Suspect]
     Indication: INFECTION
     Dosage: 1D
     Route: 042
     Dates: start: 20091004, end: 20091012
  43. MEROPENEM [Suspect]
     Indication: ANTIBACTERIAL PROPHYLAXIS
     Dosage: 1D
     Route: 042
     Dates: start: 20091004, end: 20091012
  44. MEROPENEM [Suspect]
     Indication: NEUTROPENIC SEPSIS
     Dosage: 1D
     Route: 042
     Dates: start: 20091004, end: 20091012
  45. MEROPENEM [Suspect]
     Indication: INFECTION
     Dosage: 1D
     Route: 042
     Dates: start: 20091004, end: 20091012
  46. MEROPENEM [Suspect]
     Indication: ANTIBACTERIAL PROPHYLAXIS
     Dosage: 1D
     Route: 042
     Dates: start: 20091004, end: 20091012
  47. MEROPENEM [Suspect]
     Indication: NEUTROPENIC SEPSIS
     Dosage: 1D
     Route: 042
     Dates: start: 20091004, end: 20091012
  48. MEROPENEM [Suspect]
     Indication: INFECTION
     Dosage: 1D
     Route: 042
     Dates: start: 20091004, end: 20091012
  49. MEROPENEM [Suspect]
     Indication: ANTIBACTERIAL PROPHYLAXIS
     Dosage: 1D
     Route: 042
     Dates: start: 20091004, end: 20091012
  50. MEROPENEM [Suspect]
     Indication: NEUTROPENIC SEPSIS
     Dosage: 1D
     Route: 042
     Dates: start: 20091004, end: 20091012
  51. MEROPENEM [Suspect]
     Indication: INFECTION
     Dosage: 1D
     Route: 042
     Dates: start: 20091004, end: 20091012
  52. MEROPENEM [Suspect]
     Indication: ANTIBACTERIAL PROPHYLAXIS
     Dosage: 1D
     Route: 042
     Dates: start: 20091004, end: 20091012
  53. MEROPENEM [Suspect]
     Indication: NEUTROPENIC SEPSIS
     Dosage: 1D
     Route: 042
     Dates: start: 20091004, end: 20091012
  54. MEROPENEM [Suspect]
     Indication: INFECTION
     Dosage: 1D
     Route: 042
     Dates: start: 20091004, end: 20091012
  55. MEROPENEM [Suspect]
     Indication: ANTIBACTERIAL PROPHYLAXIS
     Dosage: 1D
     Route: 042
     Dates: start: 20091004, end: 20091012
  56. MEROPENEM [Suspect]
     Indication: NEUTROPENIC SEPSIS
     Dosage: 1D
     Route: 042
     Dates: start: 20091004, end: 20091012
  57. MEROPENEM [Suspect]
     Indication: INFECTION
     Dosage: 1D
     Route: 042
     Dates: start: 20091004, end: 20091012
  58. MEROPENEM [Suspect]
     Indication: ANTIBACTERIAL PROPHYLAXIS
     Dosage: 1D
     Route: 042
     Dates: start: 20091004, end: 20091012
  59. MEROPENEM [Suspect]
     Indication: NEUTROPENIC SEPSIS
     Dosage: 1D
     Route: 042
     Dates: start: 20091004, end: 20091012
  60. MEROPENEM [Suspect]
     Indication: INFECTION
     Dosage: 1D
     Route: 042
     Dates: start: 20091004, end: 20091012
  61. MEROPENEM [Suspect]
     Indication: ANTIBACTERIAL PROPHYLAXIS
     Dosage: 1D
     Route: 042
     Dates: start: 20091004, end: 20091012
  62. MEROPENEM [Suspect]
     Indication: NEUTROPENIC SEPSIS
     Dosage: 1D
     Route: 042
     Dates: start: 20091004, end: 20091012
  63. MEROPENEM [Suspect]
     Indication: INFECTION
     Dosage: 1D
     Route: 042
     Dates: start: 20090918, end: 20090922
  64. MEROPENEM [Suspect]
     Indication: ANTIBACTERIAL PROPHYLAXIS
     Dosage: 1D
     Route: 042
     Dates: start: 20090918, end: 20090922
  65. MEROPENEM [Suspect]
     Indication: NEUTROPENIC SEPSIS
     Dosage: 1D
     Route: 042
     Dates: start: 20090918, end: 20090922
  66. MEROPENEM [Suspect]
     Indication: INFECTION
     Dosage: 1D
     Route: 042
     Dates: start: 20090918, end: 20090922
  67. MEROPENEM [Suspect]
     Indication: ANTIBACTERIAL PROPHYLAXIS
     Dosage: 1D
     Route: 042
     Dates: start: 20090918, end: 20090922
  68. MEROPENEM [Suspect]
     Indication: NEUTROPENIC SEPSIS
     Dosage: 1D
     Route: 042
     Dates: start: 20090918, end: 20090922
  69. MEROPENEM [Suspect]
     Indication: INFECTION
     Dosage: 1D
     Route: 042
     Dates: start: 20090918, end: 20090922
  70. MEROPENEM [Suspect]
     Indication: ANTIBACTERIAL PROPHYLAXIS
     Dosage: 1D
     Route: 042
     Dates: start: 20090918, end: 20090922
  71. MEROPENEM [Suspect]
     Indication: NEUTROPENIC SEPSIS
     Dosage: 1D
     Route: 042
     Dates: start: 20090918, end: 20090922
  72. MEROPENEM [Suspect]
     Indication: INFECTION
     Dosage: 1D
     Route: 042
     Dates: start: 20090918, end: 20090922
  73. MEROPENEM [Suspect]
     Indication: ANTIBACTERIAL PROPHYLAXIS
     Dosage: 1D
     Route: 042
     Dates: start: 20090918, end: 20090922
  74. MEROPENEM [Suspect]
     Indication: NEUTROPENIC SEPSIS
     Dosage: 1D
     Route: 042
     Dates: start: 20090918, end: 20090922
  75. MEROPENEM [Suspect]
     Indication: INFECTION
     Dosage: 1D
     Route: 042
     Dates: start: 20090918, end: 20090922
  76. MEROPENEM [Suspect]
     Indication: ANTIBACTERIAL PROPHYLAXIS
     Dosage: 1D
     Route: 042
     Dates: start: 20090918, end: 20090922
  77. MEROPENEM [Suspect]
     Indication: NEUTROPENIC SEPSIS
     Dosage: 1D
     Route: 042
     Dates: start: 20090918, end: 20090922
  78. MEROPENEM [Suspect]
     Indication: INFECTION
     Dosage: 1D
     Route: 042
     Dates: start: 20090918, end: 20090922
  79. MEROPENEM [Suspect]
     Indication: ANTIBACTERIAL PROPHYLAXIS
     Dosage: 1D
     Route: 042
     Dates: start: 20090918, end: 20090922
  80. MEROPENEM [Suspect]
     Indication: NEUTROPENIC SEPSIS
     Dosage: 1D
     Route: 042
     Dates: start: 20090918, end: 20090922
  81. MEROPENEM [Suspect]
     Indication: INFECTION
     Dosage: 1D
     Route: 042
     Dates: start: 20090918, end: 20090922
  82. MEROPENEM [Suspect]
     Indication: ANTIBACTERIAL PROPHYLAXIS
     Dosage: 1D
     Route: 042
     Dates: start: 20090918, end: 20090922
  83. MEROPENEM [Suspect]
     Indication: NEUTROPENIC SEPSIS
     Dosage: 1D
     Route: 042
     Dates: start: 20090918, end: 20090922
  84. MEROPENEM [Suspect]
     Indication: INFECTION
     Dosage: 1D
     Route: 042
     Dates: start: 20090918, end: 20090922
  85. MEROPENEM [Suspect]
     Indication: ANTIBACTERIAL PROPHYLAXIS
     Dosage: 1D
     Route: 042
     Dates: start: 20090918, end: 20090922
  86. MEROPENEM [Suspect]
     Indication: NEUTROPENIC SEPSIS
     Dosage: 1D
     Route: 042
     Dates: start: 20090918, end: 20090922
  87. MEROPENEM [Suspect]
     Indication: INFECTION
     Dosage: 1D
     Route: 042
     Dates: start: 20090918, end: 20090922
  88. MEROPENEM [Suspect]
     Indication: ANTIBACTERIAL PROPHYLAXIS
     Dosage: 1D
     Route: 042
     Dates: start: 20090918, end: 20090922
  89. MEROPENEM [Suspect]
     Indication: NEUTROPENIC SEPSIS
     Dosage: 1D
     Route: 042
     Dates: start: 20090918, end: 20090922
  90. MEROPENEM [Suspect]
     Indication: INFECTION
     Dosage: 1D
     Route: 042
     Dates: start: 20090923, end: 20090928
  91. MEROPENEM [Suspect]
     Indication: ANTIBACTERIAL PROPHYLAXIS
     Dosage: 1D
     Route: 042
     Dates: start: 20090923, end: 20090928
  92. MEROPENEM [Suspect]
     Indication: NEUTROPENIC SEPSIS
     Dosage: 1D
     Route: 042
     Dates: start: 20090923, end: 20090928
  93. MEROPENEM [Suspect]
     Indication: INFECTION
     Dosage: 1D
     Route: 042
     Dates: start: 20090923, end: 20090928
  94. MEROPENEM [Suspect]
     Indication: ANTIBACTERIAL PROPHYLAXIS
     Dosage: 1D
     Route: 042
     Dates: start: 20090923, end: 20090928
  95. MEROPENEM [Suspect]
     Indication: NEUTROPENIC SEPSIS
     Dosage: 1D
     Route: 042
     Dates: start: 20090923, end: 20090928
  96. MEROPENEM [Suspect]
     Indication: INFECTION
     Dosage: 1D
     Route: 042
     Dates: start: 20090923, end: 20090928
  97. MEROPENEM [Suspect]
     Indication: ANTIBACTERIAL PROPHYLAXIS
     Dosage: 1D
     Route: 042
     Dates: start: 20090923, end: 20090928
  98. MEROPENEM [Suspect]
     Indication: NEUTROPENIC SEPSIS
     Dosage: 1D
     Route: 042
     Dates: start: 20090923, end: 20090928
  99. MEROPENEM [Suspect]
     Indication: INFECTION
     Dosage: 1D
     Route: 042
     Dates: start: 20090923, end: 20090928
  100. MEROPENEM [Suspect]
     Indication: ANTIBACTERIAL PROPHYLAXIS
     Dosage: 1D
     Route: 042
     Dates: start: 20090923, end: 20090928
  101. MEROPENEM [Suspect]
     Indication: NEUTROPENIC SEPSIS
     Dosage: 1D
     Route: 042
     Dates: start: 20090923, end: 20090928
  102. MEROPENEM [Suspect]
     Indication: INFECTION
     Dosage: 1D
     Route: 042
     Dates: start: 20090923, end: 20090928
  103. MEROPENEM [Suspect]
     Indication: ANTIBACTERIAL PROPHYLAXIS
     Dosage: 1D
     Route: 042
     Dates: start: 20090923, end: 20090928
  104. MEROPENEM [Suspect]
     Indication: NEUTROPENIC SEPSIS
     Dosage: 1D
     Route: 042
     Dates: start: 20090923, end: 20090928
  105. MEROPENEM [Suspect]
     Indication: INFECTION
     Dosage: 1D
     Route: 042
     Dates: start: 20090923, end: 20090928
  106. MEROPENEM [Suspect]
     Indication: ANTIBACTERIAL PROPHYLAXIS
     Dosage: 1D
     Route: 042
     Dates: start: 20090923, end: 20090928
  107. MEROPENEM [Suspect]
     Indication: NEUTROPENIC SEPSIS
     Dosage: 1D
     Route: 042
     Dates: start: 20090923, end: 20090928
  108. MEROPENEM [Suspect]
     Indication: INFECTION
     Dosage: 1D
     Route: 042
     Dates: start: 20090923, end: 20090928
  109. MEROPENEM [Suspect]
     Indication: ANTIBACTERIAL PROPHYLAXIS
     Dosage: 1D
     Route: 042
     Dates: start: 20090923, end: 20090928
  110. MEROPENEM [Suspect]
     Indication: NEUTROPENIC SEPSIS
     Dosage: 1D
     Route: 042
     Dates: start: 20090923, end: 20090928
  111. MEROPENEM [Suspect]
     Indication: INFECTION
     Dosage: 1D
     Route: 042
     Dates: start: 20090923, end: 20090928
  112. MEROPENEM [Suspect]
     Indication: ANTIBACTERIAL PROPHYLAXIS
     Dosage: 1D
     Route: 042
     Dates: start: 20090923, end: 20090928
  113. MEROPENEM [Suspect]
     Indication: NEUTROPENIC SEPSIS
     Dosage: 1D
     Route: 042
     Dates: start: 20090923, end: 20090928
  114. MEROPENEM [Suspect]
     Indication: INFECTION
     Dosage: 1D
     Route: 042
     Dates: start: 20090923, end: 20090928
  115. MEROPENEM [Suspect]
     Indication: ANTIBACTERIAL PROPHYLAXIS
     Dosage: 1D
     Route: 042
     Dates: start: 20090923, end: 20090928
  116. MEROPENEM [Suspect]
     Indication: NEUTROPENIC SEPSIS
     Dosage: 1D
     Route: 042
     Dates: start: 20090923, end: 20090928

REACTIONS (4)
  - Clostridium difficile colitis [None]
  - Neutropenic sepsis [None]
  - Blood bilirubin increased [None]
  - Thrombocytopenia [None]
